FAERS Safety Report 17292560 (Version 1)
Quarter: 2020Q1

REPORT INFORMATION
  Report Type: Report from Study
  Country: US (occurrence: US)
  Receive Date: 20200121
  Receipt Date: 20200121
  Transmission Date: 20200409
  Serious: Yes (Other)
  Sender: FDA-Public Use
  Company Number: US-BAYER-2019-237865

PATIENT
  Age: 77 Year
  Sex: Female
  Weight: 120.18 kg

DRUGS (2)
  1. ADEMPAS [Suspect]
     Active Substance: RIOCIGUAT
     Indication: PULMONARY ARTERIAL HYPERTENSION
     Dosage: 1.0 MG, TID
     Route: 048
  2. ADEMPAS [Suspect]
     Active Substance: RIOCIGUAT
     Indication: PULMONARY ARTERIAL HYPERTENSION
     Dosage: UNK
     Route: 048
     Dates: start: 20191205

REACTIONS (5)
  - Blood pressure decreased [None]
  - Oedema peripheral [Not Recovered/Not Resolved]
  - Constipation [None]
  - Fatigue [None]
  - Dizziness [None]
